FAERS Safety Report 10798323 (Version 1)
Quarter: 2015Q1

REPORT INFORMATION
  Report Type: Report from Study
  Country: US (occurrence: US)
  Receive Date: 20150216
  Receipt Date: 20150216
  Transmission Date: 20150721
  Serious: Yes (Other)
  Sender: FDA-Public Use
  Company Number: PHEH2015US002565

PATIENT
  Sex: Female

DRUGS (2)
  1. GILENYA [Suspect]
     Active Substance: FINGOLIMOD HYDROCHLORIDE
     Indication: MULTIPLE SCLEROSIS
     Dosage: 0.5 MG, QD
     Route: 048
     Dates: start: 201312
  2. GABAPENTIN. [Concomitant]
     Active Substance: GABAPENTIN
     Indication: PRODUCT USED FOR UNKNOWN INDICATION
     Route: 065

REACTIONS (14)
  - Hyperlipidaemia [Unknown]
  - Cerebral atrophy [Unknown]
  - Muscle spasms [Unknown]
  - Coordination abnormal [Unknown]
  - Cerebral ventricle dilatation [Unknown]
  - Central nervous system lesion [Unknown]
  - Overweight [Unknown]
  - Diffuse axonal injury [Unknown]
  - Sensory disturbance [Not Recovered/Not Resolved]
  - Muscle spasticity [Unknown]
  - Back pain [Not Recovered/Not Resolved]
  - White matter lesion [Unknown]
  - Gait disturbance [Unknown]
  - Cerebral disorder [Unknown]
